FAERS Safety Report 6425065-7 (Version None)
Quarter: 2009Q4

REPORT INFORMATION
  Report Type: 
  Country: None (occurrence: None)
  Receive Date: 20091103
  Receipt Date: 20091023
  Transmission Date: 20100525
  Serious: Yes (Other)
  Sender: FDA-Public Use
  Company Number: BR-ROCHE-664461

PATIENT
  Sex: Male

DRUGS (3)
  1. ROACUTAN [Suspect]
     Indication: DRUG USE FOR UNKNOWN INDICATION
     Dosage: FIRST TREATMENT
     Route: 065
  2. ROACUTAN [Suspect]
     Dosage: SECOND TREATMENT
     Route: 065
  3. ROACUTAN [Suspect]
     Route: 065

REACTIONS (5)
  - ACCIDENT [None]
  - HAEMORRHAGE [None]
  - IMPAIRED HEALING [None]
  - TOOTH FRACTURE [None]
  - TOOTH INFECTION [None]
